FAERS Safety Report 7859116-X (Version None)
Quarter: 2011Q4

REPORT INFORMATION
  Report Type: 
  Country: None (occurrence: None)
  Receive Date: 20111027
  Receipt Date: 20111022
  Transmission Date: 20120403
  Serious: Yes (Death)
  Sender: FDA-Public Use
  Company Number: PHHY2011BD93229

PATIENT
  Age: 84 Year
  Sex: Male
  Weight: 58 kg

DRUGS (1)
  1. EXELON [Suspect]
     Indication: DEMENTIA
     Dosage: 5CM, DAILY
     Route: 062
     Dates: start: 20110820

REACTIONS (1)
  - DEATH [None]
